FAERS Safety Report 4841719-8 (Version None)
Quarter: 2005Q4

REPORT INFORMATION
  Report Type: 
  Country: None (occurrence: None)
  Receive Date: 20051127
  Receipt Date: 20050829
  Transmission Date: 20060501
  Serious: Yes (Other)
  Sender: FDA-Public Use
  Company Number: HQWYE219631AUG05

PATIENT
  Sex: Female

DRUGS (5)
  1. PREMARIN [Suspect]
     Indication: HORMONE REPLACEMENT THERAPY
  2. CENESTIN [Suspect]
  3. ESTRING [Suspect]
  4. PROMETRIUM [Suspect]
  5. VAGIFEM [Suspect]

REACTIONS (1)
  - BREAST CANCER [None]
